FAERS Safety Report 4384971-8 (Version None)
Quarter: 2004Q2

REPORT INFORMATION
  Report Type: 
  Country: None (occurrence: None)
  Receive Date: 20040625
  Receipt Date: 20040615
  Transmission Date: 20050107
  Serious: Yes (Hospitalization)
  Sender: FDA-Public Use
  Company Number: PHNR2004AU01096

PATIENT
  Sex: Female

DRUGS (9)
  1. TEGRETOL [Suspect]
     Indication: PSYCHOTIC DISORDER
     Dosage: 200 MG, QD
     Route: 048
     Dates: end: 20010809
  2. FELODIPINE [Suspect]
     Dosage: 10 MG, QD
     Route: 048
     Dates: end: 20010809
  3. TENORMIN [Suspect]
     Dosage: 100 MG, QD
     Route: 048
     Dates: end: 20010809
  4. SEROQUEL [Suspect]
     Dosage: 400 MG, QD
     Route: 048
     Dates: start: 20010715, end: 20010809
  5. LITHIUM [Concomitant]
  6. LARGACTIL [Concomitant]
  7. FLUPHENAZINE [Concomitant]
  8. TAZAC [Concomitant]
  9. LIPITOR [Concomitant]

REACTIONS (9)
  - BLOOD CREATININE INCREASED [None]
  - BRADYCARDIA [None]
  - CIRCULATORY COLLAPSE [None]
  - DEHYDRATION [None]
  - DIZZINESS [None]
  - GASTROINTESTINAL MOTILITY DISORDER [None]
  - HYPERKALAEMIA [None]
  - HYPOTENSION [None]
  - RENAL IMPAIRMENT [None]
